FAERS Safety Report 8599455 (Version 2)
Quarter: 2013Q1

REPORT INFORMATION
  Report Type: Report from Study
  Country: US (occurrence: US)
  Receive Date: 20120605
  Receipt Date: 20130104
  Transmission Date: 20140127
  Serious: Yes (Other)
  Sender: FDA-Public Use
  Company Number: US-ROCHE-1018596

PATIENT
  Age: 36 Year
  Sex: Female
  Weight: 79.9 kg

DRUGS (33)
  1. OMALIZUMAB [Suspect]
     Indication: ASTHMA
     Route: 058
     Dates: start: 20111012
  2. ADVAIR [Concomitant]
     Dosage: 01 PUFF PER 01 DAY
     Route: 065
     Dates: end: 20110801
  3. ALBUTEROL [Concomitant]
     Dosage: 01 OR 02 VIALS DAILY
     Route: 065
  4. CETIRIZINE [Concomitant]
     Route: 065
  5. PREDNISONE [Concomitant]
     Route: 048
     Dates: start: 20110928
  6. PROAIR (UNITED STATES) [Concomitant]
     Route: 065
  7. SINGULAIR [Concomitant]
     Route: 048
     Dates: start: 20110706
  8. RESTASIS [Concomitant]
     Dosage: PTLAMIC EMULSION,
     Route: 047
     Dates: start: 20110705
  9. CYCLOBENZAPRINE [Concomitant]
     Route: 065
  10. OMEPRAZOLE [Concomitant]
     Route: 065
  11. TOPIRAMATE [Concomitant]
     Route: 048
  12. HYDROXYCHLOROQUINE [Concomitant]
     Route: 065
  13. LYRICA [Concomitant]
     Route: 065
  14. CYMBALTA [Concomitant]
     Route: 048
     Dates: start: 20110705
  15. LEXAPRO [Concomitant]
     Route: 048
     Dates: start: 20110928
  16. VITAMIN B COMPLEX [Concomitant]
     Route: 048
     Dates: start: 20110818, end: 20110818
  17. NAPROXEN [Concomitant]
     Dosage: 01 TABLET TWICE DAILY WITH MEALS
     Route: 048
     Dates: start: 20110523
  18. AMITRIPTYLINE [Concomitant]
     Dosage: 01 TABLET AT BEDTIME
     Route: 048
     Dates: start: 20110705
  19. AMITRIPTYLINE [Concomitant]
     Dosage: 01 TABLET AT BEDTIME
     Route: 048
     Dates: start: 20110712
  20. VOLTAREN GEL [Concomitant]
     Dosage: USE A SDIRECTED
     Route: 062
     Dates: start: 20110829
  21. PRILOSEC [Concomitant]
     Route: 048
     Dates: start: 20110705
  22. MYLANTA DS [Concomitant]
     Dosage: 1.05 TBSP DAILY
     Route: 065
     Dates: start: 20110705
  23. BACTROBAN [Concomitant]
     Dosage: APLY THIN FLM THREE TIMES A  DAY
     Route: 065
     Dates: start: 20110915
  24. FLEXERIL [Concomitant]
     Dosage: ON TAB AT BEDTIME
     Route: 048
  25. FOLIC ACID [Concomitant]
     Route: 048
     Dates: start: 20110705
  26. HYDROCODONE BITARTRATE [Concomitant]
     Dosage: 5-500 MG, 01 TAB AS NEEDED RFO PAIN
     Route: 048
     Dates: start: 20110408
  27. IMITREX [Concomitant]
     Dosage: 01 TABLET AT THE TIME OF ONSET OF MIGRAINE HEADACHE, MAY REAPEAT IN 02 HOURS IF REQUIRED
     Route: 048
  28. NEXIUM [Concomitant]
     Dosage: ONE CAPSULE DAILY AS NEEDED
     Route: 048
     Dates: start: 20110408
  29. PLAQUENIL [Concomitant]
     Route: 048
     Dates: start: 20110523
  30. PREMPRO [Concomitant]
     Dosage: 0.3-1.5 MG
     Route: 048
     Dates: start: 20110727, end: 20110727
  31. PREMPRO [Concomitant]
     Dosage: 0.3-1.5 MG
     Route: 048
     Dates: start: 20110915, end: 20110915
  32. PROAIR (UNITED STATES) [Concomitant]
     Dosage: INHALE 2 PUFFS BY MOUTH EVERY 04 TO 06 HOURS AS NEEDED
     Route: 065
     Dates: start: 20110928
  33. ZYFLO [Concomitant]
     Route: 048
     Dates: start: 20110725

REACTIONS (2)
  - Type I hypersensitivity [Unknown]
  - Dyspnoea [Recovered/Resolved]
